FAERS Safety Report 9628872 (Version 1)
Quarter: 2013Q4

REPORT INFORMATION
  Report Type: Spontaneous
  Country: ES (occurrence: ES)
  Receive Date: 20131017
  Receipt Date: 20131017
  Transmission Date: 20140711
  Serious: Yes (Other)
  Sender: FDA-Public Use
  Company Number: ES-JNJFOC-20131009434

PATIENT
  Age: 80 Year
  Sex: Female

DRUGS (1)
  1. PALEXIA RETARD [Suspect]
     Indication: OSTEOARTHRITIS
     Route: 048
     Dates: start: 20130909, end: 20130912

REACTIONS (2)
  - Dyskinesia [Recovered/Resolved]
  - Agitation [Recovered/Resolved]
